FAERS Safety Report 8469339-7 (Version None)
Quarter: 2012Q2

REPORT INFORMATION
  Report Type: 
  Country: None (occurrence: None)
  Receive Date: 20120620
  Receipt Date: 20120606
  Transmission Date: 20120825
  Serious: Yes (Other)
  Sender: FDA-Public Use
  Company Number: 2012FR0198

PATIENT
  Sex: Male

DRUGS (1)
  1. KINERET [Suspect]
     Indication: JUVENILE ARTHRITIS

REACTIONS (2)
  - BURKITT'S LYMPHOMA [None]
  - DEPRESSIVE SYMPTOM [None]
